FAERS Safety Report 20638476 (Version 1)
Quarter: 2022Q1

REPORT INFORMATION
  Report Type: Report from Study
  Country: SI (occurrence: SI)
  Receive Date: 20220325
  Receipt Date: 20220325
  Transmission Date: 20220423
  Serious: Yes (Other)
  Sender: FDA-Public Use
  Company Number: SI-AMGEN-SVNNI2022050992

PATIENT
  Sex: Male

DRUGS (1)
  1. AMG-510 [Suspect]
     Active Substance: AMG-510
     Indication: Non-small cell lung cancer
     Dosage: UNK
     Route: 065
     Dates: start: 20210804, end: 20210928

REACTIONS (1)
  - Non-small cell lung cancer [Unknown]
